FAERS Safety Report 9305068 (Version 2)
Quarter: 2013Q2

REPORT INFORMATION
  Report Type: Spontaneous
  Country: US (occurrence: US)
  Receive Date: 20130523
  Receipt Date: 20130627
  Transmission Date: 20140414
  Serious: Yes (Hospitalization, Other)
  Sender: FDA-Public Use
  Company Number: US-JNJFOC-20130506273

PATIENT
  Sex: 0

DRUGS (3)
  1. INVEGA SUSTENNA [Suspect]
     Indication: PSYCHOTIC DISORDER
     Route: 030
  2. RISPERDAL CONSTA [Suspect]
     Indication: PRODUCT USED FOR UNKNOWN INDICATION
     Route: 030
  3. RISPERDAL [Interacting]
     Indication: PSYCHOTIC DISORDER
     Route: 048
     Dates: start: 201304, end: 201305

REACTIONS (3)
  - Hospitalisation [Unknown]
  - Extrapyramidal disorder [Recovering/Resolving]
  - Drug interaction [Unknown]
